FAERS Safety Report 11850430 (Version 2)
Quarter: 2017Q3

REPORT INFORMATION
  Report Type: Spontaneous
  Country: US (occurrence: US)
  Receive Date: 20151218
  Receipt Date: 20170725
  Transmission Date: 20171127
  Serious: No
  Sender: FDA-Public Use
  Company Number: US-JNJFOC-20151111013

PATIENT
  Sex: Female

DRUGS (1)
  1. MOTRIN IB [Suspect]
     Active Substance: IBUPROFEN
     Indication: PRODUCT USED FOR UNKNOWN INDICATION
     Route: 048
     Dates: start: 20151106

REACTIONS (3)
  - Pain [Recovered/Resolved]
  - Laceration [Recovered/Resolved]
  - Product packaging issue [Recovering/Resolving]

NARRATIVE: CASE EVENT DATE: 20151106
